FAERS Safety Report 6942280-4 (Version None)
Quarter: 2010Q3

REPORT INFORMATION
  Report Type: 
  Country: None (occurrence: None)
  Receive Date: 20100823
  Receipt Date: 20100805
  Transmission Date: 20110219
  Serious: Yes (Other)
  Sender: FDA-Public Use
  Company Number: ACO_01700_2010

PATIENT
  Sex: Male
  Weight: 92.9874 kg

DRUGS (9)
  1. AMPYRA [Suspect]
     Indication: GAIT DISTURBANCE
     Dosage: 10 MG BID ORAL, 10 MG QD ORAL
     Route: 048
     Dates: start: 20100312, end: 20100101
  2. AMPYRA [Suspect]
     Indication: GAIT DISTURBANCE
     Dosage: 10 MG BID ORAL, 10 MG QD ORAL
     Route: 048
     Dates: start: 20100101, end: 20100805
  3. NEURONTIN [Concomitant]
  4. XANAX [Concomitant]
  5. AMBIEN [Concomitant]
  6. TYSABRI [Concomitant]
  7. PROVIGIL [Concomitant]
  8. VITAMIN D [Concomitant]
  9. NORTRIPTYLINE HCL [Concomitant]

REACTIONS (2)
  - CONVULSION [None]
  - DYSPNOEA [None]
